FAERS Safety Report 22037177 (Version 1)
Quarter: 2023Q1

REPORT INFORMATION
  Report Type: Spontaneous
  Country: US (occurrence: US)
  Receive Date: 20230226
  Receipt Date: 20230226
  Transmission Date: 20230418
  Serious: Yes (Other)
  Sender: FDA-Public Use
  Company Number: US-UCBSA-2023009764

PATIENT
  Sex: Female

DRUGS (1)
  1. CIMZIA [Suspect]
     Active Substance: CERTOLIZUMAB PEGOL
     Indication: Crohn^s disease
     Dosage: INJECT 2 SYRINGES, 400 MG SUBCUTANEOUSLY AT WEEKS 0, 2 AND 4.
     Route: 058
     Dates: start: 202212

REACTIONS (3)
  - Neoplasm malignant [Unknown]
  - Crohn^s disease [Unknown]
  - Therapy interrupted [Unknown]
